FAERS Safety Report 20541814 (Version 2)
Quarter: 2022Q1

REPORT INFORMATION
  Report Type: Other
  Country: None (occurrence: SE)
  Receive Date: 20220302
  Receipt Date: 20220314
  Transmission Date: 20220423
  Serious: Yes (Hospitalization)
  Sender: FDA-Public Use
  Company Number: SE-ALSI-2022000048

PATIENT
  Age: 19 Year
  Sex: Male

DRUGS (1)
  1. NITROUS OXIDE [Suspect]
     Active Substance: NITROUS OXIDE
     Indication: Product used for unknown indication
     Route: 055

REACTIONS (1)
  - Myelopathy [Recovered/Resolved]
